FAERS Safety Report 16155471 (Version 10)
Quarter: 2019Q3

REPORT INFORMATION
  Report Type: Report from Study
  Country: US (occurrence: US)
  Receive Date: 20190404
  Receipt Date: 20190830
  Transmission Date: 20191004
  Serious: Yes (Hospitalization, Other)
  Sender: FDA-Public Use
  Company Number: US-BRISTOL-MYERS SQUIBB COMPANY-BMS-2019-033189

PATIENT
  Age: 70 Year
  Sex: Female

DRUGS (3)
  1. IPILIMUMAB [Suspect]
     Active Substance: IPILIMUMAB
     Indication: MALIGNANT MELANOMA
     Dosage: UNK UNK, Q3WK
     Route: 042
     Dates: start: 20190328
  2. FLONASE                            /00908302/ [Concomitant]
     Active Substance: MOMETASONE FUROATE
     Indication: PRODUCT USED FOR UNKNOWN INDICATION
     Route: 065
  3. NIVOLUMAB [Suspect]
     Active Substance: NIVOLUMAB
     Indication: MALIGNANT MELANOMA
     Dosage: UNK UNK, Q2WK
     Route: 042
     Dates: start: 20190328, end: 20190619

REACTIONS (29)
  - Gastric cancer [Not Recovered/Not Resolved]
  - Emotional disorder [Unknown]
  - Urinary incontinence [Unknown]
  - Anxiety [Unknown]
  - Dehydration [Recovered/Resolved]
  - Memory impairment [Unknown]
  - Myalgia [Unknown]
  - Headache [Unknown]
  - Musculoskeletal discomfort [Unknown]
  - Limb discomfort [Recovered/Resolved]
  - Arthritis [Not Recovered/Not Resolved]
  - Nausea [Recovered/Resolved]
  - Stress [Unknown]
  - Feeling hot [Unknown]
  - Decreased appetite [Unknown]
  - Adrenal insufficiency [Unknown]
  - Fatigue [Recovered/Resolved]
  - Sinus headache [Recovered/Resolved]
  - Vomiting [Unknown]
  - Constipation [Recovered/Resolved]
  - Arthropathy [Unknown]
  - Tremor [Recovered/Resolved]
  - Sleep disorder [Unknown]
  - Weight decreased [Unknown]
  - Paranasal sinus hypersecretion [Unknown]
  - Pollakiuria [Recovered/Resolved]
  - Mood altered [Recovered/Resolved]
  - Dry skin [Not Recovered/Not Resolved]
  - Asthenia [Recovered/Resolved]

NARRATIVE: CASE EVENT DATE: 20190424
